FAERS Safety Report 24979525 (Version 1)
Quarter: 2025Q1

REPORT INFORMATION
  Report Type: Report from Study
  Country: US (occurrence: US)
  Receive Date: 20250218
  Receipt Date: 20250218
  Transmission Date: 20250408
  Serious: No
  Sender: SYNDAX
  Company Number: US-SYNDAX PHARMACEUTICALS, INC.-2025US000133

PATIENT
  Sex: Female

DRUGS (1)
  1. REVUFORJ [Suspect]
     Active Substance: REVUMENIB CITRATE
     Indication: Myelodysplastic syndrome
     Dosage: 160 MILLIGRAM, BID
     Route: 048
     Dates: start: 20250107

REACTIONS (2)
  - Off label use [Unknown]
  - Product dose omission issue [Unknown]
